FAERS Safety Report 24979326 (Version 1)
Quarter: 2025Q1

REPORT INFORMATION
  Report Type: Spontaneous
  Country: CA (occurrence: CA)
  Receive Date: 20250218
  Receipt Date: 20250218
  Transmission Date: 20250409
  Serious: Yes (Other)
  Sender: ROCHE
  Company Number: CA-002147023-NVSC2025CA024686

PATIENT
  Age: 36 Year
  Sex: Female

DRUGS (25)
  1. OMALIZUMAB [Suspect]
     Active Substance: OMALIZUMAB
     Indication: Chronic spontaneous urticaria
     Dosage: 300 MG, 1 EVERY 4 WEEKS
     Route: 058
  2. OMALIZUMAB [Suspect]
     Active Substance: OMALIZUMAB
     Dosage: 300 MG, 1 EVERY 4 WEEKS
     Route: 058
  3. OMALIZUMAB [Suspect]
     Active Substance: OMALIZUMAB
     Route: 058
  4. OMALIZUMAB [Suspect]
     Active Substance: OMALIZUMAB
     Dosage: UNK, 1 EVERY 4 WEEKS
     Route: 058
  5. OMALIZUMAB [Suspect]
     Active Substance: OMALIZUMAB
     Dosage: 300 MG, 1 EVERY 4 WEEKS
     Route: 058
  6. OMALIZUMAB [Suspect]
     Active Substance: OMALIZUMAB
     Dosage: 300 MG, 1 EVERY 4 WEEKS
     Route: 058
  7. OMALIZUMAB [Suspect]
     Active Substance: OMALIZUMAB
     Dosage: 300 MG, 1 EVERY 4 WEEKS
     Route: 058
  8. OMALIZUMAB [Suspect]
     Active Substance: OMALIZUMAB
     Dosage: 300 MG, 1 EVERY 4 WEEKS
     Route: 058
  9. OMALIZUMAB [Suspect]
     Active Substance: OMALIZUMAB
     Dosage: UNK, 1 EVERY 4 WEEKS
     Route: 058
  10. OMALIZUMAB [Suspect]
     Active Substance: OMALIZUMAB
     Dosage: 300 MG, 1 EVERY 4 WEEKS
     Route: 058
  11. OMALIZUMAB [Suspect]
     Active Substance: OMALIZUMAB
     Dosage: 300 MG, 1 EVERY 4 WEEKS
     Route: 058
  12. OMALIZUMAB [Suspect]
     Active Substance: OMALIZUMAB
     Dosage: 300 MG, 1 EVERY 4 WEEKS
     Route: 058
  13. OMALIZUMAB [Suspect]
     Active Substance: OMALIZUMAB
     Dosage: 300 MG, 1 EVERY 4 WEEKS
     Route: 058
  14. OMALIZUMAB [Suspect]
     Active Substance: OMALIZUMAB
     Dosage: 300 MG, 1 EVERY 4 WEEKS
     Route: 058
  15. OMALIZUMAB [Suspect]
     Active Substance: OMALIZUMAB
     Dosage: 300 MG, 1 EVERY 4 WEEKS
     Route: 058
  16. OMALIZUMAB [Suspect]
     Active Substance: OMALIZUMAB
     Dosage: 300 MG, 1 EVERY 4 WEEKS
     Route: 058
  17. OMALIZUMAB [Suspect]
     Active Substance: OMALIZUMAB
     Dosage: UNK
     Route: 058
  18. ACETAMINOPHEN [Concomitant]
     Active Substance: ACETAMINOPHEN
     Indication: Product used for unknown indication
     Route: 065
  19. CETIRIZINE HYDROCHLORIDE [Concomitant]
     Active Substance: CETIRIZINE HYDROCHLORIDE
     Indication: Chronic spontaneous urticaria
     Dosage: 10 MG, QD
     Route: 065
  20. CETIRIZINE HYDROCHLORIDE [Concomitant]
     Active Substance: CETIRIZINE HYDROCHLORIDE
     Dosage: 1 DOSAGE FORM, QD
     Route: 065
  21. CETIRIZINE HYDROCHLORIDE [Concomitant]
     Active Substance: CETIRIZINE HYDROCHLORIDE
     Dosage: 10 MG, QD
     Route: 050
  22. CETIRIZINE HYDROCHLORIDE [Concomitant]
     Active Substance: CETIRIZINE HYDROCHLORIDE
     Dosage: 2 DOSAGE FORM, QD
     Route: 050
  23. IBUPROFEN [Concomitant]
     Active Substance: IBUPROFEN
     Indication: Product used for unknown indication
     Route: 065
  24. ORPHENADRINE [Concomitant]
     Active Substance: ORPHENADRINE
     Indication: Product used for unknown indication
     Route: 065
  25. EBASTINE [Concomitant]
     Active Substance: EBASTINE
     Indication: Chronic spontaneous urticaria
     Route: 048

REACTIONS (26)
  - Anaemia [Not Recovered/Not Resolved]
  - Blood pressure systolic increased [Not Recovered/Not Resolved]
  - Chlamydial infection [Not Recovered/Not Resolved]
  - Dry mouth [Not Recovered/Not Resolved]
  - Emotional disorder [Not Recovered/Not Resolved]
  - Erythema [Not Recovered/Not Resolved]
  - Hepatic fibrosis [Not Recovered/Not Resolved]
  - Inappropriate schedule of product administration [Unknown]
  - Inflammation [Not Recovered/Not Resolved]
  - Injection site pain [Not Recovered/Not Resolved]
  - Intervertebral disc protrusion [Not Recovered/Not Resolved]
  - Ligament sprain [Not Recovered/Not Resolved]
  - Metabolic dysfunction-associated steatohepatitis [Not Recovered/Not Resolved]
  - Movement disorder [Not Recovered/Not Resolved]
  - Myalgia [Not Recovered/Not Resolved]
  - Paraesthesia [Not Recovered/Not Resolved]
  - Pruritus [Not Recovered/Not Resolved]
  - Psoriasis [Not Recovered/Not Resolved]
  - Rash [Not Recovered/Not Resolved]
  - Rosacea [Not Recovered/Not Resolved]
  - Swelling [Not Recovered/Not Resolved]
  - Symptom recurrence [Not Recovered/Not Resolved]
  - Therapeutic response decreased [Not Recovered/Not Resolved]
  - Thermal burn [Not Recovered/Not Resolved]
  - Urticaria [Not Recovered/Not Resolved]
  - Wrong technique in product usage process [Unknown]
